FAERS Safety Report 5380848-X (Version None)
Quarter: 2007Q3

REPORT INFORMATION
  Report Type: 
  Country: None (occurrence: None)
  Receive Date: 20070706
  Receipt Date: 20070703
  Transmission Date: 20080115
  Serious: Yes (Death, Other)
  Sender: FDA-Public Use
  Company Number: US-ASTRAZENECA-2005UW00847

PATIENT
  Age: 68 Year
  Sex: Female

DRUGS (6)
  1. CRESTOR [Suspect]
     Route: 048
     Dates: start: 20040225, end: 20041119
  2. XANAX [Concomitant]
  3. NEXIUM [Concomitant]
  4. CELEXA [Concomitant]
  5. ZYRTEC [Concomitant]
  6. SYNTHROID [Concomitant]

REACTIONS (4)
  - AMYOTROPHIC LATERAL SCLEROSIS [None]
  - DYSARTHRIA [None]
  - DYSPHAGIA [None]
  - SWOLLEN TONGUE [None]
